FAERS Safety Report 17012417 (Version 1)
Quarter: 2019Q4

REPORT INFORMATION
  Report Type: Spontaneous
  Country: US (occurrence: US)
  Receive Date: 20191108
  Receipt Date: 20191108
  Transmission Date: 20200122
  Serious: Yes (Death)
  Sender: FDA-Public Use
  Company Number: US-PFIZER INC-2015366186

PATIENT
  Age: 72 Year
  Sex: Female

DRUGS (49)
  1. TYLENOL [Concomitant]
     Active Substance: ACETAMINOPHEN
     Indication: PAIN
     Dosage: 325 MG, AS NEEDED (1-2 TABLETS BY MOUTH EVERY 4 HOURS)
     Route: 048
  2. ATROVENT [Concomitant]
     Active Substance: IPRATROPIUM BROMIDE
     Indication: RHINORRHOEA
     Dosage: UNK, 3X/DAY(1 TO 2 SPRAYS IN EACH NOSTRIL )
     Route: 045
  3. SEREVENT DISKUS [Concomitant]
     Active Substance: SALMETEROL XINAFOATE
     Dosage: 1 DF, 2X/DAY (50 MCG/DOSE; ONE INHALATION BY MOUTH EVERY 12 HRS)
     Route: 048
  4. ZAROXOLYN [Concomitant]
     Active Substance: METOLAZONE
     Dosage: 2.5 MG, WEEKLY
     Route: 048
  5. LIPITOR [Concomitant]
     Active Substance: ATORVASTATIN CALCIUM
     Indication: BLOOD CHOLESTEROL
     Dosage: 80 MG, 1X/DAY
     Route: 048
  6. LIPITOR [Concomitant]
     Active Substance: ATORVASTATIN CALCIUM
     Indication: BLOOD TRIGLYCERIDES ABNORMAL
     Dosage: 80 MG, DAILY
     Route: 048
  7. LANTUS SOLOSTAR [Concomitant]
     Active Substance: INSULIN GLARGINE
     Indication: TYPE 2 DIABETES MELLITUS
     Dosage: 49 IU, 1X/DAY (EVERY MORNING)
     Route: 058
  8. LOPRESSOR [Concomitant]
     Active Substance: METOPROLOL TARTRATE
     Dosage: 50 MG, 2X/DAY
     Route: 048
  9. PRILOSEC [Concomitant]
     Active Substance: OMEPRAZOLE MAGNESIUM
     Indication: GASTROOESOPHAGEAL REFLUX DISEASE
     Dosage: 20 MG, 1X/DAY
     Route: 048
  10. DEMADEX [Concomitant]
     Active Substance: TORSEMIDE
     Dosage: 20 MG, DAILY
     Route: 048
  11. COUMADINE [Concomitant]
     Active Substance: WARFARIN SODIUM
     Indication: OBSTRUCTION
     Dosage: UNK, DAILY (TAKE 0.5-2 TABS BY MOUTH DAILY)
     Route: 048
  12. VITAMIN C [Concomitant]
     Active Substance: ASCORBIC ACID
     Indication: SUPPLEMENTATION THERAPY
     Dosage: 500 MG, DAILY
     Route: 048
  13. CEPACOL [Concomitant]
     Active Substance: BENZOCAINE
     Dosage: UNK [BENZOCAINE 15 MG]/[ CETYLPYRIDINIUM CHLORIDE 3.6 MG](EVERY 2 HOURS AS NEEDED)
     Route: 048
  14. CALCIUM CARBERGOCALCIFEROL [Concomitant]
     Dosage: 1 DF, DAILY (CALCIUM: 500MG, ERGOCALCIFEROL: 200MG/ 500-200 MG-UNIT)
     Route: 048
  15. VITAMIN B12 [Concomitant]
     Active Substance: CYANOCOBALAMIN
     Indication: SUPPLEMENTATION THERAPY
     Dosage: 1000 UG, DAILY
     Route: 048
  16. LIDODERM [Concomitant]
     Active Substance: LIDOCAINE
     Dosage: DAILY(APPLY 3 PATCHES)
     Route: 062
  17. REVATIO [Suspect]
     Active Substance: SILDENAFIL CITRATE
     Indication: PULMONARY ARTERIAL HYPERTENSION
     Dosage: 40 MG, 3X/DAY (20 MG; 2 TABLETS PO TID)
     Route: 048
  18. FOLIC ACID. [Concomitant]
     Active Substance: FOLIC ACID
     Dosage: 1 MG, DAILY
     Route: 048
  19. COZAAR [Concomitant]
     Active Substance: LOSARTAN POTASSIUM
     Dosage: 50 MG, 1X/DAY (TAKE 0.5 TABLETS; EVERY 24 HOURS)
     Route: 048
  20. HUMALOG [Concomitant]
     Active Substance: INSULIN LISPRO
     Dosage: UNK, 3X/DAY (INJECT 12-16 UNITS- BEFORE MEALS)
     Route: 058
  21. FLOVENT HFA [Concomitant]
     Active Substance: FLUTICASONE PROPIONATE
     Dosage: UNK, 2X/DAY (INHALE 2 PUFFS 2 TIMES DAILY; RINSE MOUTH/ GARGLE AFTER USE)(110 MCG/ACTUATION)
     Route: 048
  22. SEREVENT DISKUS [Concomitant]
     Active Substance: SALMETEROL XINAFOATE
     Dosage: 1 DF, 2X/DAY  (INHALE 1 PUFF TWO TIMES A DAY)(50 MCG/DOSE)
  23. DEMADEX [Concomitant]
     Active Substance: TORSEMIDE
     Dosage: 20 MG, 1X/DAY
     Route: 048
  24. DEMADEX [Concomitant]
     Active Substance: TORSEMIDE
     Dosage: 40 MG, 2X/DAY
     Route: 048
  25. OSCAL-500 [Concomitant]
     Dosage: 1000 MG, 1X/DAY (500 MG; 2 TABLETS BY MOUTH DAILY (EVERY 24 HOURS)
     Route: 048
  26. PRILOSEC [Concomitant]
     Active Substance: OMEPRAZOLE MAGNESIUM
     Dosage: 20 MG, 2X/DAY
     Route: 048
  27. HUMALOG [Concomitant]
     Active Substance: INSULIN LISPRO
     Dosage: 4 IU, 3X/DAY(1 UNIT FOR EACH 50}150; CALL MD FOR} 300 OR {70)
  28. THERAGRAN [Concomitant]
     Active Substance: VITAMINS
     Indication: SUPPLEMENTATION THERAPY
     Dosage: 1 DF, DAILY
     Route: 048
  29. REVATIO [Suspect]
     Active Substance: SILDENAFIL CITRATE
     Dosage: 40 MG, 3X/DAY(TAKE 2 TABS BY MOUTH THREE TIMES A DAY)
     Route: 048
  30. TYLENOL [Concomitant]
     Active Substance: ACETAMINOPHEN
     Dosage: 325 MG, AS NEEDED (1-2 TABS BY MOUTH EVERY 6 HOURS AS NEEDED)
     Route: 048
  31. ZYLOPRIM [Concomitant]
     Active Substance: ALLOPURINOL
     Dosage: 200 MG, DAILY (100 MG; 2 TABLETS BY MOUTH)(TAKE 2 TABS BY MOUTH DAILY)
     Route: 048
  32. CLARITIN [Concomitant]
     Active Substance: LORATADINE
     Indication: SEASONAL ALLERGY
     Dosage: 10 MG, DAILY
     Route: 048
  33. LOPRESSOR [Concomitant]
     Active Substance: METOPROLOL TARTRATE
     Dosage: 125 MG, 2X/DAY
     Route: 048
  34. COUMADINE [Concomitant]
     Active Substance: WARFARIN SODIUM
     Indication: THROMBOSIS
  35. ALBUTEROL SULFATE. [Concomitant]
     Active Substance: ALBUTEROL SULFATE
     Indication: DYSPNOEA
     Dosage: AS NEEDED (108(90 BASE) MCG/ACT 1-2 PUFFS EVERY 6 HOURS)
  36. DUONEB [Concomitant]
     Active Substance: ALBUTEROL SULFATE\IPRATROPIUM BROMIDE
     Indication: ASTHMA
     Dosage: 4X/DAY INHALE 3 ML  (IPRATROPIUM BROMIDE 0.5 MG:  SALBUTAMOL SULFATE 2.5 MG)/3 ML
  37. NORVASC [Concomitant]
     Active Substance: AMLODIPINE BESYLATE
     Dosage: 5 MG, 1X/DAY (EVERY 24 HOURS)
     Route: 048
  38. ROCALTROL [Concomitant]
     Active Substance: CALCITRIOL
     Indication: HYPERPARATHYROIDISM SECONDARY
     Dosage: 0.25 ?G, 1X/DAY (1 CAPSULE BY MOUTH DAILY (EVERY 24 HOURS)
     Route: 048
  39. ROCALTROL [Concomitant]
     Active Substance: CALCITRIOL
     Dosage: 0.25 UG, DAILY
     Route: 048
  40. PROZAC [Concomitant]
     Active Substance: FLUOXETINE HYDROCHLORIDE
     Indication: MAJOR DEPRESSION
     Dosage: 20 MG, 1X/DAY (TAKE 1 CAPSULE BY MOUTH) (EVERY 24 HOURS)
     Route: 048
  41. FOLIC ACID. [Concomitant]
     Active Substance: FOLIC ACID
     Dosage: 1 MG, 1X/DAY
     Route: 048
  42. NORCO [Concomitant]
     Active Substance: ACETAMINOPHEN\HYDROCODONE BITARTRATE
     Indication: PAIN
     Dosage: 1 DF, AS NEEDED (HYDROCODONE: 5-ACETAMINOPHEN: 325MG) (1 TABLET BY MOUTH EVERY 6 HOURS)
     Route: 048
  43. ATROVENT [Concomitant]
     Active Substance: IPRATROPIUM BROMIDE
     Indication: SEASONAL ALLERGY
     Dosage: UNK, DAILY (1 SPRAY INTO BOTH NOSTRILS DAILY)
     Route: 045
  44. CLARITIN [Concomitant]
     Active Substance: LORATADINE
     Indication: HYPERSENSITIVITY
     Dosage: 10 MG, AS NEEDED (DAILY)
     Route: 048
  45. LOPRESSOR [Concomitant]
     Active Substance: METOPROLOL TARTRATE
     Dosage: 100 MG, 2X/DAY
     Route: 048
  46. COUMADINE [Concomitant]
     Active Substance: WARFARIN SODIUM
     Indication: ATRIAL FIBRILLATION
     Dosage: 5 MG, 1X/DAY (ONE OR TWO TABLETS ONCE DAILY)
  47. FERROUS SULFATE. [Concomitant]
     Active Substance: FERROUS SULFATE
     Indication: ANAEMIA
     Dosage: 325 MG, DAILY (DAILY WITH BREAKFAST) (325 (65 FE) MG)
     Route: 048
  48. LANTUS [Concomitant]
     Active Substance: INSULIN GLARGINE
     Indication: DIABETES MELLITUS
     Dosage: 50 IU, DAILY
     Route: 058
  49. PROZAC [Concomitant]
     Active Substance: FLUOXETINE HYDROCHLORIDE
     Dosage: 20 MG, DAILY (DAILY (EVERY 24 HOURS))
     Route: 048

REACTIONS (3)
  - Product use issue [Unknown]
  - Off label use [Unknown]
  - Death [Fatal]
